FAERS Safety Report 4870251-0 (Version None)
Quarter: 2006Q1

REPORT INFORMATION
  Report Type: 
  Country: None (occurrence: None)
  Receive Date: 20060102
  Receipt Date: 20051227
  Transmission Date: 20060701
  Serious: Yes (Disabling)
  Sender: FDA-Public Use
  Company Number: 2005AC02036

PATIENT
  Age: 35 Year
  Sex: Female

DRUGS (3)
  1. XYLOCAINE [Suspect]
  2. XYLOCAINE [Suspect]
  3. LINISOL [Suspect]

REACTIONS (4)
  - DIZZINESS [None]
  - FATIGUE [None]
  - MUSCLE SPASMS [None]
  - MUSCULOSKELETAL STIFFNESS [None]
